FAERS Safety Report 10265310 (Version 1)
Quarter: 2014Q2

REPORT INFORMATION
  Report Type: Spontaneous
  Country: US (occurrence: US)
  Receive Date: 20140627
  Receipt Date: 20140627
  Transmission Date: 20141212
  Serious: Yes (Hospitalization)
  Sender: FDA-Public Use
  Company Number: US-SA-2014SA080955

PATIENT
  Age: 84 Year
  Sex: Male

DRUGS (3)
  1. TAXOTERE [Suspect]
     Indication: LUNG NEOPLASM MALIGNANT
     Dosage: FREQUENCY: ONE TIME 2 WEEKS AGO
     Route: 065
     Dates: start: 201406
  2. ANTINEOPLASTIC AGENTS [Concomitant]
  3. CORTICOSTEROIDS [Concomitant]

REACTIONS (4)
  - Mental status changes [Not Recovered/Not Resolved]
  - Personality change [Not Recovered/Not Resolved]
  - Impaired work ability [Not Recovered/Not Resolved]
  - Confusional state [Not Recovered/Not Resolved]
